FAERS Safety Report 7425789-9 (Version None)
Quarter: 2011Q2

REPORT INFORMATION
  Report Type: 
  Country: None (occurrence: None)
  Receive Date: 20110418
  Receipt Date: 20110418
  Transmission Date: 20111010
  Serious: Yes (Hospitalization, Other)
  Sender: FDA-Public Use
  Company Number: None

PATIENT
  Age: 26 Year
  Sex: Female
  Weight: 61.2356 kg

DRUGS (1)
  1. ZOLOFT [Suspect]
     Indication: CHEST PAIN
     Dosage: TAKE 1 TABLET EACH DAY
     Dates: start: 20101108, end: 20101124

REACTIONS (8)
  - WEIGHT DECREASED [None]
  - DRY MOUTH [None]
  - DISTURBANCE IN ATTENTION [None]
  - HYPOPHAGIA [None]
  - NAUSEA [None]
  - IMPAIRED WORK ABILITY [None]
  - TREMOR [None]
  - NIGHTMARE [None]
